FAERS Safety Report 9731453 (Version 1)
Quarter: 2013Q4

REPORT INFORMATION
  Report Type: Spontaneous
  Country: US (occurrence: None)
  Receive Date: 20131204
  Receipt Date: 20131204
  Transmission Date: 20140711
  Serious: Yes (Disabling)
  Sender: FDA-Public Use
  Company Number: None

PATIENT
  Age: 84 Year
  Sex: Female
  Weight: 54.89 kg

DRUGS (1)
  1. AMLODIPINE [Suspect]
     Indication: HYPERTENSION
     Route: 048
     Dates: start: 20120901

REACTIONS (15)
  - Refusal of treatment by patient [None]
  - Local swelling [None]
  - Local swelling [None]
  - Gallbladder operation [None]
  - Gait disturbance [None]
  - Weight increased [None]
  - Influenza [None]
  - Aphagia [None]
  - Insomnia [None]
  - Feeling hot [None]
  - Malaise [None]
  - Asthenia [None]
  - Hair growth abnormal [None]
  - Local swelling [None]
  - Thyroid disorder [None]
